FAERS Safety Report 19794216 (Version 4)
Quarter: 2021Q3

REPORT INFORMATION
  Report Type: Spontaneous
  Country: JP (occurrence: JP)
  Receive Date: 20210907
  Receipt Date: 20210917
  Transmission Date: 20211014
  Serious: Yes (Other)
  Sender: FDA-Public Use
  Company Number: JP-BRISTOL-MYERS SQUIBB COMPANY-BMS-2021-088338

PATIENT
  Age: 44 Year
  Sex: Male

DRUGS (4)
  1. OPDIVO [Suspect]
     Active Substance: NIVOLUMAB
     Indication: NON-SMALL CELL LUNG CANCER RECURRENT
     Dosage: UNK
     Route: 041
  2. CISPLATIN. [Suspect]
     Active Substance: CISPLATIN
     Indication: NON-SMALL CELL LUNG CANCER RECURRENT
     Dosage: UNK
     Route: 065
  3. YERVOY [Suspect]
     Active Substance: IPILIMUMAB
     Indication: NON-SMALL CELL LUNG CANCER RECURRENT
     Dosage: UNK
     Route: 041
  4. PEMETREXED. [Suspect]
     Active Substance: PEMETREXED
     Indication: NON-SMALL CELL LUNG CANCER RECURRENT
     Dosage: UNK
     Route: 065

REACTIONS (11)
  - Thrombophlebitis [Recovering/Resolving]
  - Brachiocephalic vein thrombosis [Unknown]
  - Subclavian vein thrombosis [Unknown]
  - Neutrophil count decreased [Unknown]
  - Rash [Unknown]
  - Anaemia [Unknown]
  - Diarrhoea [Unknown]
  - Peripheral swelling [Unknown]
  - Phrenic nerve paralysis [Unknown]
  - Vomiting [Unknown]
  - Jugular vein occlusion [Unknown]
